FAERS Safety Report 23792640 (Version 2)
Quarter: 2024Q2

REPORT INFORMATION
  Report Type: Spontaneous
  Country: FR (occurrence: FR)
  Receive Date: 20240429
  Receipt Date: 20240507
  Transmission Date: 20240716
  Serious: Yes (Death, Other)
  Sender: FDA-Public Use
  Company Number: None

PATIENT
  Age: 73 Year
  Sex: Male
  Weight: 94 kg

DRUGS (18)
  1. HEPARIN CALCIUM [Suspect]
     Active Substance: HEPARIN CALCIUM
     Indication: Thrombosis prophylaxis
     Dosage: UNK
  2. LOVENOX [Suspect]
     Active Substance: ENOXAPARIN SODIUM
     Indication: Thrombosis prophylaxis
     Dosage: 4000IU, QD
     Route: 058
     Dates: start: 20240126, end: 20240204
  3. HEPARIN SODIUM [Suspect]
     Active Substance: HEPARIN SODIUM
     Indication: Thrombosis prophylaxis
     Dosage: 28000 IU, TOTAL
     Route: 042
     Dates: start: 20240126, end: 20240126
  4. LINEZOLID [Concomitant]
     Active Substance: LINEZOLID
     Dosage: UNK
  5. FERTAB [Concomitant]
     Dosage: UNK
  6. FOLIC ACID [Concomitant]
     Active Substance: FOLIC ACID
     Dosage: UNK
  7. THIAMINE [Concomitant]
     Active Substance: THIAMINE
     Dosage: UNK
  8. SIMVASTATIN [Concomitant]
     Active Substance: SIMVASTATIN
     Dosage: UNK
  9. PREGABALIN [Concomitant]
     Active Substance: PREGABALIN
     Dosage: UNK
  10. SPIRONOLACTONE [Concomitant]
     Active Substance: SPIRONOLACTONE
     Dosage: UNK
  11. SODIUM BICARBONATE [Concomitant]
     Active Substance: SODIUM BICARBONATE
     Dosage: UNK
  12. MEROPENEM [Concomitant]
     Active Substance: MEROPENEM
     Dosage: UNK
  13. POTASSIUM [Concomitant]
     Active Substance: POTASSIUM
     Dosage: UNK
  14. PANTOPRAZOLE [Concomitant]
     Active Substance: PANTOPRAZOLE
     Dosage: UNK
  15. FUROSEMIDE [Concomitant]
     Active Substance: FUROSEMIDE
     Dosage: UNK
  16. PYRIDOXINE [Concomitant]
     Active Substance: PYRIDOXINE
     Dosage: UNK
  17. ACETAMINOPHEN [Concomitant]
     Active Substance: ACETAMINOPHEN
     Dosage: UNK
  18. MUCODRILL [Concomitant]
     Dosage: UNK
     Dates: start: 20240126, end: 20240130

REACTIONS (8)
  - Heparin-induced thrombocytopenia [Fatal]
  - Septic shock [Unknown]
  - Mediastinitis [Unknown]
  - Pericarditis [Unknown]
  - Hepatorenal syndrome [Unknown]
  - Haematuria [Unknown]
  - Epistaxis [Unknown]
  - Haematoma [Unknown]

NARRATIVE: CASE EVENT DATE: 20240205
